FAERS Safety Report 6633079-7 (Version None)
Quarter: 2010Q1

REPORT INFORMATION
  Report Type: 
  Country: None (occurrence: None)
  Receive Date: 20100312
  Receipt Date: 20100301
  Transmission Date: 20100710
  Serious: Yes (Hospitalization)
  Sender: FDA-Public Use
  Company Number: PHHY2010GB12252

PATIENT
  Sex: Female

DRUGS (2)
  1. RASILEZ [Suspect]
  2. VERAPAMIL [Concomitant]

REACTIONS (3)
  - FALL [None]
  - HEAD INJURY [None]
  - SUBDURAL HAEMATOMA [None]
